FAERS Safety Report 6716968-4 (Version None)
Quarter: 2010Q2

REPORT INFORMATION
  Report Type: 
  Country: None (occurrence: None)
  Receive Date: 20100510
  Receipt Date: 20100430
  Transmission Date: 20101027
  Serious: Yes (Hospitalization)
  Sender: FDA-Public Use
  Company Number: FR-JNJFOC-20100500174

PATIENT
  Age: 38 Year
  Sex: Male

DRUGS (9)
  1. HALDOL [Suspect]
     Indication: SCHIZOPHRENIA
     Route: 048
  2. HALDOL DECANOAS [Suspect]
     Indication: SCHIZOPHRENIA
  3. ABILIFY [Suspect]
     Indication: SCHIZOPHRENIA
     Route: 048
  4. THERALENE [Suspect]
     Indication: SCHIZOPHRENIA
     Route: 048
  5. CLOPIXOL [Suspect]
     Indication: SCHIZOPHRENIA
     Route: 048
  6. RIVOTRIL [Concomitant]
     Indication: DELIRIUM
     Route: 048
  7. TERCIAN [Concomitant]
     Indication: DELIRIUM
  8. TERALITHE [Concomitant]
  9. NOZINAN [Concomitant]
     Indication: SCHIZOPHRENIA

REACTIONS (5)
  - CYTOLYTIC HEPATITIS [None]
  - DELIRIUM [None]
  - EOSINOPHILIA [None]
  - PYREXIA [None]
  - RHABDOMYOLYSIS [None]
